FAERS Safety Report 22360232 (Version 1)
Quarter: 2023Q2

REPORT INFORMATION
  Report Type: Spontaneous
  Country: US (occurrence: US)
  Receive Date: 20230524
  Receipt Date: 20230524
  Transmission Date: 20230722
  Serious: Yes (Other)
  Sender: FDA-Public Use
  Company Number: US-SA-SAC20230523000347

PATIENT
  Age: 58 Year
  Sex: Male

DRUGS (3)
  1. AMBIEN [Suspect]
     Active Substance: ZOLPIDEM TARTRATE
     Dosage: UNK
     Route: 065
  2. XELJANZ [Concomitant]
     Active Substance: TOFACITINIB CITRATE
     Dosage: UNK
  3. FOSAMAX [Concomitant]
     Active Substance: ALENDRONATE SODIUM

REACTIONS (2)
  - Rheumatoid arthritis [Unknown]
  - Pain [Unknown]
